FAERS Safety Report 24991828 (Version 1)
Quarter: 2025Q1

REPORT INFORMATION
  Report Type: Spontaneous
  Country: US (occurrence: US)
  Receive Date: 20250220
  Receipt Date: 20250220
  Transmission Date: 20250409
  Serious: Yes (Hospitalization)
  Sender: PURDUE
  Company Number: US-NAPPMUNDI-GBR-2025-0123587

PATIENT
  Age: 19 Year
  Sex: Female

DRUGS (25)
  1. METHYLPHENIDATE HYDROCHLORIDE [Suspect]
     Active Substance: METHYLPHENIDATE HYDROCHLORIDE
     Indication: Aggression
     Dosage: 20 MILLIGRAM, TID
     Route: 065
  2. METHYLPHENIDATE HYDROCHLORIDE [Suspect]
     Active Substance: METHYLPHENIDATE HYDROCHLORIDE
     Indication: Autism spectrum disorder
     Dosage: 20 MILLIGRAM, BID
     Route: 065
  3. METHYLPHENIDATE HYDROCHLORIDE [Suspect]
     Active Substance: METHYLPHENIDATE HYDROCHLORIDE
     Indication: Intellectual disability
  4. METHYLPHENIDATE HYDROCHLORIDE [Suspect]
     Active Substance: METHYLPHENIDATE HYDROCHLORIDE
     Indication: Self-injurious ideation
  5. PROPRANOLOL [Concomitant]
     Active Substance: PROPRANOLOL HYDROCHLORIDE
     Indication: Product used for unknown indication
     Dosage: 100 MILLIGRAM, TID
     Route: 065
  6. PROPRANOLOL [Concomitant]
     Active Substance: PROPRANOLOL HYDROCHLORIDE
     Dosage: 80 MILLIGRAM, TID
     Route: 065
  7. PROPRANOLOL [Concomitant]
     Active Substance: PROPRANOLOL HYDROCHLORIDE
     Dosage: 100 MILLIGRAM, TID
     Route: 065
  8. PROPRANOLOL [Concomitant]
     Active Substance: PROPRANOLOL HYDROCHLORIDE
     Dosage: 120 MILLIGRAM, TID
     Route: 065
  9. FLUVOXAMINE [Concomitant]
     Active Substance: FLUVOXAMINE
     Indication: Product used for unknown indication
     Dosage: 100 MILLIGRAM, BID
     Route: 065
  10. FLUVOXAMINE [Concomitant]
     Active Substance: FLUVOXAMINE
     Dosage: 40 MILLIGRAM, DAILY
     Route: 065
  11. CLOBAZAM [Concomitant]
     Active Substance: CLOBAZAM
     Indication: Epilepsy
     Dosage: 20 MILLIGRAM, DAILY
     Route: 065
  12. CANNABIDIOL [Concomitant]
     Active Substance: CANNABIDIOL
     Indication: Epilepsy
     Dosage: 600 MILLIGRAM, BID
     Route: 065
  13. GABAPENTIN [Concomitant]
     Active Substance: GABAPENTIN
     Indication: Epilepsy
     Dosage: 200 MILLIGRAM, TID
     Route: 065
  14. CLONAZEPAM [Concomitant]
     Active Substance: CLONAZEPAM
     Indication: Product used for unknown indication
     Route: 065
  15. CLONAZEPAM [Concomitant]
     Active Substance: CLONAZEPAM
     Dosage: 3.5 MILLIGRAM, TID
     Route: 065
  16. CLONAZEPAM [Concomitant]
     Active Substance: CLONAZEPAM
     Dosage: 4 MILLIGRAM, TID
     Route: 065
  17. CLONAZEPAM [Concomitant]
     Active Substance: CLONAZEPAM
     Dosage: 5 MILLIGRAM, TID
     Route: 065
  18. CLONAZEPAM [Concomitant]
     Active Substance: CLONAZEPAM
     Dosage: 6 MILLIGRAM, TID
     Route: 065
  19. CLONAZEPAM [Concomitant]
     Active Substance: CLONAZEPAM
     Dosage: 6.5 MILLIGRAM, TID
     Route: 065
  20. CLONAZEPAM [Concomitant]
     Active Substance: CLONAZEPAM
     Dosage: 7 MILLIGRAM, TID
     Route: 065
  21. CLONAZEPAM [Concomitant]
     Active Substance: CLONAZEPAM
     Dosage: 23 MILLIGRAM, DAILY
     Route: 065
  22. MEMANTINE [Concomitant]
     Active Substance: MEMANTINE
     Indication: Product used for unknown indication
     Route: 065
  23. MEMANTINE [Concomitant]
     Active Substance: MEMANTINE
     Dosage: 17.5 MILLIGRAM, BID
     Route: 065
  24. MEMANTINE [Concomitant]
     Active Substance: MEMANTINE
     Dosage: 15 MILLIGRAM, BID
     Route: 065
  25. VALPROIC ACID [Concomitant]
     Active Substance: VALPROIC ACID
     Indication: Product used for unknown indication
     Dosage: 500 MILLIGRAM, BID
     Route: 065

REACTIONS (3)
  - Condition aggravated [Not Recovered/Not Resolved]
  - Off label use [Unknown]
  - Drug ineffective for unapproved indication [Unknown]
